FAERS Safety Report 8340203 (Version 2)
Quarter: 2013Q1

REPORT INFORMATION
  Report Type: Spontaneous
  Country: FR (occurrence: FR)
  Receive Date: 20120117
  Receipt Date: 20130326
  Transmission Date: 20140127
  Serious: Yes (Other)
  Sender: FDA-Public Use
  Company Number: PHHY2012FR001983

PATIENT
  Age: 35 Year
  Sex: Male

DRUGS (3)
  1. CICLOSPORIN [Suspect]
     Indication: APLASTIC ANAEMIA
     Dosage: 5 MG/KG, UNK
  2. ANTITHYMOCYTE IMMUNOGLOBULIN [Suspect]
     Dosage: UNK UKN, UNK
  3. PREDNISONE [Concomitant]
     Dosage: 1 MG/KG, DAILY

REACTIONS (3)
  - Aplastic anaemia [Unknown]
  - Skin disorder [Unknown]
  - No therapeutic response [Unknown]
